FAERS Safety Report 12654633 (Version 1)
Quarter: 2016Q3

REPORT INFORMATION
  Report Type: Spontaneous
  Country: US (occurrence: None)
  Receive Date: 20160815
  Receipt Date: 20160815
  Transmission Date: 20161109
  Serious: Yes (Other)
  Sender: FDA-Public Use
  Company Number: None

PATIENT
  Age: 54 Year
  Sex: Female
  Weight: 120.2 kg

DRUGS (5)
  1. METFORMIN [Concomitant]
     Active Substance: METFORMIN HYDROCHLORIDE
  2. MOTRIN [Concomitant]
     Active Substance: IBUPROFEN
  3. LOTRIMIN [Suspect]
     Active Substance: CLOTRIMAZOLE
     Indication: TINEA CRURIS
     Dosage: 1 THIN LAYER ONCE A DAY  APPLIED TO A SURFACE, USUALLY THE SKIN
     Dates: start: 20160624, end: 20160807
  4. HYDROCHLOROTHIAZIDE. [Concomitant]
     Active Substance: HYDROCHLOROTHIAZIDE
  5. POTASSIUM CITRATE. [Concomitant]
     Active Substance: POTASSIUM CITRATE

REACTIONS (12)
  - Chemical injury [None]
  - Erythema [None]
  - Flushing [None]
  - Feeling hot [None]
  - Pruritus [None]
  - Condition aggravated [None]
  - Skin warm [None]
  - Genital haemorrhage [None]
  - Genital burning sensation [None]
  - Wound secretion [None]
  - Pruritus generalised [None]
  - Hypersensitivity [None]

NARRATIVE: CASE EVENT DATE: 20160807
